FAERS Safety Report 4880761-8 (Version None)
Quarter: 2006Q1

REPORT INFORMATION
  Report Type: 
  Country: None (occurrence: None)
  Receive Date: 20060111
  Receipt Date: 20051128
  Transmission Date: 20060701
  Serious: No
  Sender: FDA-Public Use
  Company Number: 2005S1000257

PATIENT
  Weight: 91 kg

DRUGS (4)
  1. CUBICIN [Suspect]
     Indication: OSTEOMYELITIS
     Dosage: 5.5 MG/KG;Q24H;IV
     Route: 042
     Dates: start: 20051101
  2. CUBICIN [Suspect]
     Indication: SKIN INFECTION
     Dosage: 5.5 MG/KG;Q24H;IV
     Route: 042
     Dates: start: 20051101
  3. LEVOFLOXACIN [Concomitant]
  4. PERCOCET [Concomitant]

REACTIONS (2)
  - ARTHRALGIA [None]
  - BLOOD CREATINE PHOSPHOKINASE INCREASED [None]
